FAERS Safety Report 7621136-8 (Version None)
Quarter: 2011Q3

REPORT INFORMATION
  Report Type: 
  Country: None (occurrence: None)
  Receive Date: 20110719
  Receipt Date: 20110713
  Transmission Date: 20111222
  Serious: Yes (Death, Other)
  Sender: FDA-Public Use
  Company Number: PHHY2011JP63612

PATIENT
  Sex: Female

DRUGS (9)
  1. CYCLOPHOSPHAMIDE [Concomitant]
  2. TEGAFUR [Concomitant]
  3. TRASTUZUMAB [Concomitant]
  4. ZOLEDRONIC ACID [Suspect]
     Indication: METASTASES TO BONE
     Route: 041
  5. DOCETAXEL [Concomitant]
  6. CAPECITABINE [Concomitant]
  7. FLUOROURACIL [Concomitant]
  8. PACLITAXEL [Concomitant]
  9. TS 1 [Concomitant]

REACTIONS (4)
  - HAEMORRHAGE [None]
  - GENERAL PHYSICAL HEALTH DETERIORATION [None]
  - SKIN ULCER [None]
  - WHITE BLOOD CELL COUNT DECREASED [None]
